FAERS Safety Report 11176650 (Version 1)
Quarter: 2015Q2

REPORT INFORMATION
  Report Type: Spontaneous
  Country: US (occurrence: US)
  Receive Date: 20150610
  Receipt Date: 20150610
  Transmission Date: 20150821
  Serious: No
  Sender: FDA-Public Use
  Company Number: US-BAYER-2015-308062

PATIENT
  Age: 9 Year
  Sex: Male

DRUGS (1)
  1. MIRALAX [Suspect]
     Active Substance: POLYETHYLENE GLYCOL 3350
     Indication: CONSTIPATION
     Dosage: 2 CAPFULS, TID
     Route: 048
     Dates: start: 20150504

REACTIONS (4)
  - Diarrhoea [Unknown]
  - Drug administered to patient of inappropriate age [None]
  - Off label use [None]
  - Product use issue [None]

NARRATIVE: CASE EVENT DATE: 20150504
